FAERS Safety Report 6229345-X (Version None)
Quarter: 2009Q2

REPORT INFORMATION
  Report Type: 
  Country: None (occurrence: None)
  Receive Date: 20090615
  Receipt Date: 20090605
  Transmission Date: 20091009
  Serious: Yes (Death, Other)
  Sender: FDA-Public Use
  Company Number: US-JNJFOC-20090603317

PATIENT
  Age: 56 Year
  Sex: Female

DRUGS (1)
  1. REOPRO [Suspect]
     Indication: CORONARY ARTERY OCCLUSION

REACTIONS (2)
  - CARDIAC ARREST [None]
  - CORONARY ARTERY OCCLUSION [None]
